FAERS Safety Report 4380040-1 (Version None)
Quarter: 2004Q2

REPORT INFORMATION
  Report Type: 
  Country: None (occurrence: None)
  Receive Date: 20040614
  Receipt Date: 20040601
  Transmission Date: 20050107
  Serious: Yes (Other)
  Sender: FDA-Public Use
  Company Number: JP-2004-025577

PATIENT
  Age: 61 Year
  Sex: Female
  Weight: 40 kg

DRUGS (7)
  1. BETAFERON (INTERFERON BETA - 1B) INJECTION, 250UG [Suspect]
     Indication: MULTIPLE SCLEROSIS
     Dosage: 8 MIU, EVERY 2D, SUBCUTANEOUS
     Route: 058
     Dates: start: 20031211, end: 20040316
  2. LIORESAL TABLET [Concomitant]
  3. ALMARL (AROTINOLOL HYDROCHLORIDE) TABLET [Concomitant]
  4. MAGNESIUM OXIDE (MAGNESIUM OXIDE) POWDER [Concomitant]
  5. LOXONIN (LOXOPROFEN SODIUM) TABLET [Concomitant]
  6. POLLAKISU (OXYBUTYNIN HYDROCHLORIDE) TABLET [Concomitant]
  7. BUP-4 (PROPIVERINE HYDROCHLORIDE) TABLET [Concomitant]

REACTIONS (5)
  - ALANINE AMINOTRANSFERASE INCREASED [None]
  - ASPARTATE AMINOTRANSFERASE INCREASED [None]
  - LIVER DISORDER [None]
  - RETINAL EXUDATES [None]
  - RETINOPATHY [None]
